FAERS Safety Report 9155682 (Version 1)
Quarter: 2013Q1

REPORT INFORMATION
  Report Type: Spontaneous
  Country: US (occurrence: US)
  Receive Date: 20130311
  Receipt Date: 20130311
  Transmission Date: 20140127
  Serious: No
  Sender: FDA-Public Use
  Company Number: US-ASTRAZENECA-2013SE07938

PATIENT
  Age: 78 Year
  Sex: Female

DRUGS (6)
  1. CRESTOR [Suspect]
     Route: 048
  2. TRICOR [Concomitant]
  3. ZETIA [Concomitant]
  4. ASPIRIN [Concomitant]
     Indication: ANTICOAGULANT THERAPY
  5. CENTRUM SILVER [Concomitant]
  6. LASIX [Concomitant]

REACTIONS (2)
  - Hypertension [Unknown]
  - Blood cholesterol increased [Unknown]
